FAERS Safety Report 14276328 (Version 1)
Quarter: 2017Q4

REPORT INFORMATION
  Report Type: Spontaneous
  Country: US (occurrence: US)
  Receive Date: 20171212
  Receipt Date: 20171212
  Transmission Date: 20180321
  Serious: Yes (Hospitalization, Other)
  Sender: FDA-Public Use
  Company Number: US-PFIZER INC-2017524601

PATIENT
  Age: 69 Year
  Sex: Male

DRUGS (1)
  1. ATROPINE SULFATE/DIPHENOXYLATE HYDROCHLORIDE [Suspect]
     Active Substance: ATROPINE SULFATE\DIPHENOXYLATE HYDROCHLORIDE
     Indication: DIARRHOEA
     Dosage: 2.5MG ONE TO TWO TABLETS BY MOUTH, 3X/DAY
     Route: 048

REACTIONS (25)
  - Depression [Not Recovered/Not Resolved]
  - Generalised tonic-clonic seizure [Unknown]
  - Dysgraphia [None]
  - Blindness transient [None]
  - Dysarthria [Not Recovered/Not Resolved]
  - Agitation [Unknown]
  - Pain in extremity [Unknown]
  - Drug ineffective [Unknown]
  - Dizziness [Unknown]
  - Hypertension [Unknown]
  - Product use issue [Unknown]
  - Diarrhoea [None]
  - Fear [None]
  - Sensory loss [None]
  - Gait inability [None]
  - Amnesia [Unknown]
  - Cerebrovascular accident [Unknown]
  - Hypoaesthesia [Recovered/Resolved]
  - Blindness [Unknown]
  - Speech disorder [None]
  - Hypoaesthesia [None]
  - Reading disorder [None]
  - Confusional state [Recovering/Resolving]
  - Heart rate decreased [Unknown]
  - Dry skin [Unknown]

NARRATIVE: CASE EVENT DATE: 201606
